FAERS Safety Report 8601974-5 (Version None)
Quarter: 2012Q3

REPORT INFORMATION
  Report Type: 
  Country: None (occurrence: None)
  Receive Date: 20120817
  Receipt Date: 20120620
  Transmission Date: 20120928
  Serious: Yes (Hospitalization)
  Sender: FDA-Public Use
  Company Number: US-BRISTOL-MYERS SQUIBB COMPANY-16700627

PATIENT
  Sex: Female

DRUGS (3)
  1. NEUPOGEN [Concomitant]
  2. SPRYCEL [Suspect]
     Indication: CHRONIC MYELOID LEUKAEMIA
     Dates: start: 20120101
  3. LEVAQUIN [Concomitant]
     Indication: SEPSIS

REACTIONS (1)
  - BONE MARROW FAILURE [None]
